FAERS Safety Report 4417707-2 (Version None)
Quarter: 2004Q2

REPORT INFORMATION
  Report Type: 
  Country: None (occurrence: None)
  Receive Date: 20040621
  Receipt Date: 20040416
  Transmission Date: 20050107
  Serious: Yes (Hospitalization)
  Sender: FDA-Public Use
  Company Number: PHEH2004US03492

PATIENT
  Age: 58 Year
  Sex: Male

DRUGS (3)
  1. ZOMETA [Suspect]
     Indication: MULTIPLE MYELOMA
     Dosage: 4 MG, ONCE/SINGLE, IV INFUSION
     Route: 042
     Dates: start: 20040223, end: 20040223
  2. MVI (VITAMINS NOS) [Concomitant]
  3. LOPRESSOR [Concomitant]

REACTIONS (4)
  - ABDOMINAL PAIN UPPER [None]
  - CHEST PAIN [None]
  - CONJUNCTIVITIS [None]
  - PYREXIA [None]
